FAERS Safety Report 16999402 (Version 2)
Quarter: 2020Q1

REPORT INFORMATION
  Report Type: Spontaneous
  Country: CN (occurrence: CN)
  Receive Date: 20191105
  Receipt Date: 20200116
  Transmission Date: 20200409
  Serious: Yes (Hospitalization, Other)
  Sender: FDA-Public Use
  Company Number: NVSC2019CN022894

PATIENT
  Age: 49 Year
  Sex: Female

DRUGS (1)
  1. EXFORGE [Suspect]
     Active Substance: AMLODIPINE BESYLATE\VALSARTAN
     Indication: SECONDARY HYPERTENSION
     Route: 048

REACTIONS (27)
  - Snoring [Unknown]
  - Blood pressure fluctuation [Unknown]
  - Renin increased [Unknown]
  - Feeling abnormal [Unknown]
  - Off label use [Unknown]
  - Low density lipoprotein increased [Unknown]
  - Blood sodium decreased [Unknown]
  - Fatigue [Unknown]
  - Venous oxygen partial pressure decreased [Unknown]
  - Blood triglycerides increased [Unknown]
  - Urine sodium decreased [Unknown]
  - Creatinine urine decreased [Unknown]
  - Amnesia [Unknown]
  - Type V hyperlipidaemia [Unknown]
  - Drug ineffective [Unknown]
  - High density lipoprotein decreased [Unknown]
  - Urine chloride decreased [Unknown]
  - Pain [Unknown]
  - Blood albumin decreased [Unknown]
  - Sleep apnoea syndrome [Unknown]
  - Carotid arteriosclerosis [Unknown]
  - Dizziness [Unknown]
  - Headache [Unknown]
  - Lacunar infarction [Unknown]
  - Blood pH increased [Unknown]
  - Blood bicarbonate increased [Unknown]
  - Glucose tolerance impaired [Unknown]
